FAERS Safety Report 11054073 (Version 1)
Quarter: 2015Q2

REPORT INFORMATION
  Report Type: Spontaneous
  Country: AU (occurrence: AU)
  Receive Date: 20150422
  Receipt Date: 20150422
  Transmission Date: 20150821
  Serious: Yes (Hospitalization)
  Sender: FDA-Public Use
  Company Number: AU-AMGEN-AUSSP2015019747

PATIENT
  Age: 84 Year
  Sex: Female
  Weight: 97 kg

DRUGS (3)
  1. ENBREL [Suspect]
     Active Substance: ETANERCEPT
     Indication: ANKYLOSING SPONDYLITIS
     Dosage: 50 MG, WEEKLY
     Route: 058
  2. THYROXINE [Concomitant]
     Active Substance: LEVOTHYROXINE
     Indication: HYPOTHYROIDISM
     Dosage: 75 MUG, UNK
     Route: 048
     Dates: start: 1955
  3. CELEBREX [Concomitant]
     Active Substance: CELECOXIB
     Indication: BACK PAIN
     Dosage: 200 MG, UNK
     Route: 048
     Dates: start: 2013

REACTIONS (13)
  - Hypersensitivity [Recovering/Resolving]
  - Neck deformity [Unknown]
  - Mobility decreased [Unknown]
  - Arthralgia [Unknown]
  - Back disorder [Unknown]
  - Dyspnoea [Recovering/Resolving]
  - Facial pain [Recovering/Resolving]
  - Feeling abnormal [Unknown]
  - Swelling face [Recovering/Resolving]
  - Swollen tongue [Recovering/Resolving]
  - Lip swelling [Recovering/Resolving]
  - Paraesthesia [Unknown]
  - Malaise [Unknown]

NARRATIVE: CASE EVENT DATE: 20150220
